FAERS Safety Report 5171153-5 (Version None)
Quarter: 2006Q4

REPORT INFORMATION
  Report Type: 
  Country: None (occurrence: None)
  Receive Date: 20061206
  Receipt Date: 20061206
  Transmission Date: 20070319
  Serious: Yes (Other)
  Sender: FDA-Public Use
  Company Number: None

PATIENT
  Age: 47 Year
  Sex: Female
  Weight: 65.318 kg

DRUGS (1)
  1. EFFEXOR XR [Suspect]
     Indication: DEPRESSION
     Dosage: 150 MG  EACH DAY PO
     Route: 048
     Dates: start: 20061005, end: 20061129

REACTIONS (13)
  - CHILLS [None]
  - DEPRESSION [None]
  - DRUG WITHDRAWAL SYNDROME [None]
  - EMOTIONAL DISORDER [None]
  - HYPERHIDROSIS [None]
  - MUSCLE SPASMS [None]
  - NAUSEA [None]
  - ORAL INTAKE REDUCED [None]
  - PARAESTHESIA [None]
  - TINNITUS [None]
  - UNEVALUABLE EVENT [None]
  - VISION BLURRED [None]
  - VISUAL DISTURBANCE [None]
